FAERS Safety Report 4732945-7 (Version None)
Quarter: 2005Q3

REPORT INFORMATION
  Report Type: 
  Country: None (occurrence: None)
  Receive Date: 20050803
  Receipt Date: 20050622
  Transmission Date: 20060218
  Serious: No
  Sender: FDA-Public Use
  Company Number: US-GLAXOSMITHKLINE-A0563801A

PATIENT
  Age: 53 Year
  Sex: Female

DRUGS (6)
  1. AVANDAMET [Suspect]
     Dosage: 1TAB TWICE PER DAY
     Route: 048
     Dates: start: 20050101
  2. LIPITOR [Concomitant]
  3. PROZAC [Concomitant]
  4. AVAPRO [Concomitant]
  5. ALLOPURINOL [Concomitant]
  6. CLARINEX [Concomitant]

REACTIONS (2)
  - BLOOD GLUCOSE INCREASED [None]
  - PHARMACEUTICAL PRODUCT COMPLAINT [None]
